FAERS Safety Report 15837317 (Version 4)
Quarter: 2021Q3

REPORT INFORMATION
  Report Type: Report from Study
  Country: CA (occurrence: CA)
  Receive Date: 20190117
  Receipt Date: 20210825
  Transmission Date: 20211014
  Serious: Yes (Other)
  Sender: FDA-Public Use
  Company Number: PHHY2016CA176771

PATIENT
  Age: 56 Year
  Sex: Male

DRUGS (1)
  1. GILENYA [Suspect]
     Active Substance: FINGOLIMOD HYDROCHLORIDE
     Indication: RELAPSING-REMITTING MULTIPLE SCLEROSIS
     Dosage: UNK
     Route: 048
     Dates: start: 20141222, end: 20200229

REACTIONS (7)
  - Vision blurred [Unknown]
  - Ocular hyperaemia [Unknown]
  - Visual impairment [Unknown]
  - Blindness [Unknown]
  - Eye pruritus [Unknown]
  - Expanded disability status scale score increased [Unknown]
  - Lacrimation increased [Unknown]

NARRATIVE: CASE EVENT DATE: 20210816
